FAERS Safety Report 20483144 (Version 1)
Quarter: 2022Q1

REPORT INFORMATION
  Report Type: Spontaneous
  Country: PT (occurrence: PT)
  Receive Date: 20220217
  Receipt Date: 20220217
  Transmission Date: 20220423
  Serious: Yes (Hospitalization, Other)
  Sender: FDA-Public Use
  Company Number: PT-AUROBINDO-AUR-APL-2022-002959

PATIENT
  Age: 4 Year
  Sex: Male

DRUGS (7)
  1. LEVETIRACETAM [Suspect]
     Active Substance: LEVETIRACETAM
     Indication: Seizure
     Dosage: ONCE A DAY
     Route: 065
  2. CLONAZEPAM [Suspect]
     Active Substance: CLONAZEPAM
     Indication: Seizure
     Dosage: ONCE A DAY
     Route: 065
  3. ETHOSUXIMIDE [Suspect]
     Active Substance: ETHOSUXIMIDE
     Indication: Seizure
     Dosage: 40 MILLIGRAM/KILOGRAM, TWO TIMES A DAY (500 MG/DAY)
     Route: 065
  4. ETHOSUXIMIDE [Suspect]
     Active Substance: ETHOSUXIMIDE
     Dosage: 500 MILLIGRAM, ONCE A DAY (500 MILLIGRAM DAILY; DOSAGE: 40MG/KG/DAY TWICE DAILY)
     Route: 065
  5. HUMAN IMMUNOGLOBULIN G [Suspect]
     Active Substance: HUMAN IMMUNOGLOBULIN G
     Indication: SJS-TEN overlap
     Dosage: 2 GRAM PER KILOGRAM, ONCE A DAY
     Route: 042
  6. METHYLPREDNISOLONE [Suspect]
     Active Substance: METHYLPREDNISOLONE
     Indication: SJS-TEN overlap
     Dosage: 10 MILLIGRAM/KILOGRAM, ONCE A DAY
     Route: 065
  7. VALPROATE SODIUM [Suspect]
     Active Substance: VALPROATE SODIUM
     Indication: Seizure
     Dosage: ONCE A DAY
     Route: 065

REACTIONS (2)
  - Drug ineffective [Unknown]
  - SJS-TEN overlap [Recovered/Resolved]
